FAERS Safety Report 25706407 (Version 1)
Quarter: 2025Q3

REPORT INFORMATION
  Report Type: Spontaneous
  Country: US (occurrence: US)
  Receive Date: 20250820
  Receipt Date: 20250820
  Transmission Date: 20251021
  Serious: No
  Sender: CATALYST PHARMA
  Company Number: US-CATALYST PHARMACEUTICALS-US-CATA-25-01045

PATIENT
  Sex: Male
  Weight: 39.909 kg

DRUGS (6)
  1. AGAMREE [Suspect]
     Active Substance: VAMOROLONE
     Indication: Duchenne muscular dystrophy
     Dosage: 4.6 ML ONCE A DAY
     Route: 048
     Dates: start: 20241204
  2. IRON [Concomitant]
     Active Substance: IRON
     Indication: Iron deficiency
     Dosage: 36 MG THREE TIMES A DAY
     Route: 065
  3. MULTIVITAMIN CHILDREN^S GUMMIES [Concomitant]
     Indication: Hypovitaminosis
     Dosage: GUMMIES TWO ONCE A DAY
     Route: 065
  4. ELDERBERRY GUMMY [Concomitant]
     Indication: Immune disorder prophylaxis
     Dosage: ONCE A DAY
     Route: 065
  5. VITAMIN D3 [Concomitant]
     Active Substance: CHOLECALCIFEROL
     Indication: Bone disorder
     Route: 065
  6. VITAMIN D3 [Concomitant]
     Active Substance: CHOLECALCIFEROL
     Indication: Prophylaxis

REACTIONS (1)
  - Weight increased [Not Recovered/Not Resolved]
